FAERS Safety Report 7733125-3 (Version None)
Quarter: 2011Q3

REPORT INFORMATION
  Report Type: 
  Country: None (occurrence: None)
  Receive Date: 20110907
  Receipt Date: 20110901
  Transmission Date: 20111222
  Serious: No
  Sender: FDA-Public Use
  Company Number: US-PFIZER INC-2011205532

PATIENT
  Sex: Female
  Weight: 36.281 kg

DRUGS (3)
  1. LYRICA [Suspect]
     Indication: JOINT INJURY
     Dosage: 50 MG, UNK
     Route: 048
     Dates: start: 20110801
  2. CELEBREX [Suspect]
     Indication: JOINT INJURY
     Dosage: 200 MG, 2X/DAY
     Dates: start: 20110801
  3. ZOLPIDEM TARTRATE [Concomitant]
     Indication: SLEEP DISORDER
     Dosage: UNK

REACTIONS (3)
  - VULVOVAGINAL BURNING SENSATION [None]
  - VULVOVAGINAL DISCOMFORT [None]
  - TINNITUS [None]
